FAERS Safety Report 17185416 (Version 2)
Quarter: 2020Q1

REPORT INFORMATION
  Report Type: Spontaneous
  Country: US (occurrence: US)
  Receive Date: 20191220
  Receipt Date: 20200318
  Transmission Date: 20200409
  Serious: No
  Sender: FDA-Public Use
  Company Number: US-THERAPEUTICSMD-2019TMD04641

PATIENT
  Sex: Female

DRUGS (2)
  1. IMVEXXY [Suspect]
     Active Substance: ESTRADIOL
     Indication: HOT FLUSH
     Dosage: UNK
     Dates: start: 20191112
  2. RELIZEN [Suspect]
     Active Substance: DIETARY SUPPLEMENT\HERBALS
     Indication: HOT FLUSH
     Dosage: UNK

REACTIONS (5)
  - Drug interaction [Unknown]
  - Blood oestrogen increased [Unknown]
  - Off label use [Not Recovered/Not Resolved]
  - Arthralgia [Recovered/Resolved]
  - Back pain [Recovered/Resolved]

NARRATIVE: CASE EVENT DATE: 20191112
